FAERS Safety Report 9805791 (Version 1)
Quarter: 2014Q1

REPORT INFORMATION
  Report Type: Spontaneous
  Country: US (occurrence: None)
  Receive Date: 20140108
  Receipt Date: 20140108
  Transmission Date: 20141002
  Serious: Yes (Hospitalization)
  Sender: FDA-Public Use
  Company Number: None

PATIENT
  Age: 72 Year
  Sex: Male
  Weight: 78.5 kg

DRUGS (2)
  1. AMPICILLIN [Suspect]
     Indication: URINARY TRACT INFECTION
     Route: 042
     Dates: start: 20131023, end: 20131028
  2. LISINOPRIL [Suspect]
     Indication: HYPERTENSION
     Route: 048
     Dates: start: 20121217, end: 20131028

REACTIONS (1)
  - Angioedema [None]
